FAERS Safety Report 23582529 (Version 4)
Quarter: 2024Q1

REPORT INFORMATION
  Report Type: Spontaneous
  Country: US (occurrence: US)
  Receive Date: 20240229
  Receipt Date: 20240312
  Transmission Date: 20240409
  Serious: Yes (Hospitalization, Other)
  Sender: FDA-Public Use
  Company Number: US-ABBVIE-5655303

PATIENT
  Age: 35 Year
  Sex: Female

DRUGS (5)
  1. BOTOX [Suspect]
     Active Substance: ONABOTULINUMTOXINA
     Indication: Migraine prophylaxis
     Dosage: TIME INTERVAL: AS NECESSARY
     Route: 065
  2. NURTEC ODT [Suspect]
     Active Substance: RIMEGEPANT SULFATE
     Indication: Migraine
     Dosage: TIME INTERVAL: AS NECESSARY: FREQUENCY TEXT: PRN
     Route: 048
     Dates: start: 20221107, end: 20230705
  3. ADVIL [Suspect]
     Active Substance: IBUPROFEN
     Indication: Migraine
     Dosage: FREQUENCY TEXT: PRN
     Route: 048
  4. TYLENOL [Suspect]
     Active Substance: ACETAMINOPHEN
     Indication: Migraine
     Dosage: TIME INTERVAL: AS NECESSARY: 1000-2000 MG?FREQUENCY TEXT: PRN
     Route: 048
  5. LABETALOL [Concomitant]
     Active Substance: LABETALOL\LABETALOL HYDROCHLORIDE
     Indication: Product used for unknown indication
     Route: 048
     Dates: start: 20240128

REACTIONS (8)
  - Premature delivery [Unknown]
  - Multiple birth sibling [Unknown]
  - Maternal exposure during pregnancy [Unknown]
  - Caesarean section [Unknown]
  - Multiple birth sibling [Unknown]
  - Pre-eclampsia [Unknown]
  - Twin pregnancy [Unknown]
  - Premature baby [Unknown]

NARRATIVE: CASE EVENT DATE: 20240110
